FAERS Safety Report 10617264 (Version 1)
Quarter: 2014Q4

REPORT INFORMATION
  Report Type: Spontaneous
  Country: US (occurrence: US)
  Receive Date: 20141201
  Receipt Date: 20141201
  Transmission Date: 20150529
  Serious: Yes (Other)
  Sender: FDA-Public Use
  Company Number: US-GLAXOSMITHKLINE-US2014GSK026653

PATIENT
  Sex: Female

DRUGS (4)
  1. TICLID [Concomitant]
     Active Substance: TICLOPIDINE HYDROCHLORIDE
  2. NITROGLYCERIN. [Concomitant]
     Active Substance: NITROGLYCERIN
  3. CARDIZEM [Concomitant]
     Active Substance: DILTIAZEM HYDROCHLORIDE
  4. PROPAFENONE HYDROCHLORIDE. [Suspect]
     Active Substance: PROPAFENONE HYDROCHLORIDE
     Indication: MITRAL VALVE PROLAPSE
     Dosage: 150 MG, TID
     Route: 048

REACTIONS (3)
  - Transient ischaemic attack [Recovered/Resolved]
  - Eye disorder [Recovered/Resolved]
  - Hearing impaired [Recovering/Resolving]

NARRATIVE: CASE EVENT DATE: 2010
